FAERS Safety Report 7032443-4 (Version None)
Quarter: 2010Q4

REPORT INFORMATION
  Report Type: 
  Country: None (occurrence: None)
  Receive Date: 20101007
  Receipt Date: 20091110
  Transmission Date: 20110411
  Serious: Yes (Hospitalization)
  Sender: FDA-Public Use
  Company Number: CA-BRISTOL-MYERS SQUIBB COMPANY-14851240

PATIENT
  Age: 72 Year
  Sex: Female
  Weight: 82 kg

DRUGS (11)
  1. BLINDED: BRIVANIB ALANINATE [Suspect]
     Indication: COLORECTAL CANCER METASTATIC
     Dosage: INTERRUPTED ON 07NOV09
     Route: 048
     Dates: start: 20091030, end: 20091107
  2. CETUXIMAB [Suspect]
     Indication: COLORECTAL CANCER METASTATIC
     Dosage: 649MG IV ONCE - 30OCT09-30OCT09 405MG IV WEEKLY - 06NOV09-06NOV09
     Route: 042
     Dates: start: 20091030, end: 20091106
  3. BLINDED: PLACEBO [Suspect]
     Indication: COLORECTAL CANCER METASTATIC
     Dosage: INTERRUPTED ON 07NOV09
     Route: 048
     Dates: start: 20091030, end: 20091107
  4. TYLENOL [Concomitant]
     Indication: PYREXIA
     Dates: start: 20091021
  5. DOCUSATE SODIUM [Concomitant]
     Indication: CONSTIPATION
     Dates: start: 20081101
  6. LACTULOSE [Concomitant]
     Indication: CONSTIPATION
     Dates: start: 20081120
  7. BIAXIN [Concomitant]
     Indication: PYREXIA
     Dates: start: 20091021, end: 20091027
  8. DILAUDID [Concomitant]
     Indication: PAIN
     Dates: start: 20091027
  9. LIDOCAINE [Concomitant]
     Indication: PARACENTESIS
     Dates: start: 20091027, end: 20091027
  10. LORAZEPAM [Concomitant]
     Route: 048
  11. STEMETIL [Concomitant]

REACTIONS (1)
  - MUSCULAR WEAKNESS [None]
